FAERS Safety Report 21628723 (Version 1)
Quarter: 2022Q4

REPORT INFORMATION
  Report Type: Spontaneous
  Country: US (occurrence: US)
  Receive Date: 20221122
  Receipt Date: 20221122
  Transmission Date: 20230113
  Serious: No
  Sender: FDA-Public Use
  Company Number: US-3MMEDICAL-2022-US-027505

PATIENT
  Sex: Male

DRUGS (2)
  1. DURAPREP [Suspect]
     Active Substance: IODINE POVACRYLEX\ISOPROPYL ALCOHOL
     Indication: Infection prophylaxis
     Dosage: 26 ML
     Route: 061
     Dates: start: 20210713, end: 20210713
  2. DEVICE [Suspect]
     Active Substance: DEVICE

REACTIONS (1)
  - Blister [Unknown]

NARRATIVE: CASE EVENT DATE: 20210713
